FAERS Safety Report 23259819 (Version 2)
Quarter: 2024Q1

REPORT INFORMATION
  Report Type: Spontaneous
  Country: US (occurrence: US)
  Receive Date: 20231204
  Receipt Date: 20240326
  Transmission Date: 20240410
  Serious: Yes (Hospitalization, Other)
  Sender: FDA-Public Use
  Company Number: US-PFIZER INC-202300419143

PATIENT
  Age: 83 Year
  Sex: Male
  Weight: 77.098 kg

DRUGS (2)
  1. MEKTOVI [Suspect]
     Active Substance: BINIMETINIB
     Indication: Malignant melanoma
     Dosage: 45 MG, (3 TABLETS OF 15 MG), TWICE A DAY
     Route: 048
     Dates: end: 202311
  2. MEKTOVI [Suspect]
     Active Substance: BINIMETINIB
     Dosage: 15 MG 2XDAY 3 TABS/DAY
     Dates: start: 20231011

REACTIONS (7)
  - Hallucination [Recovered/Resolved]
  - Balance disorder [Recovered/Resolved]
  - Fall [Not Recovered/Not Resolved]
  - Head injury [Unknown]
  - Diarrhoea [Unknown]
  - Vomiting [Unknown]
  - Chromaturia [Unknown]

NARRATIVE: CASE EVENT DATE: 20231106
